FAERS Safety Report 9154145 (Version 1)
Quarter: 2013Q1

REPORT INFORMATION
  Report Type: Spontaneous
  Country: US (occurrence: US)
  Receive Date: 20130311
  Receipt Date: 20130311
  Transmission Date: 20140127
  Serious: Yes (Other)
  Sender: FDA-Public Use
  Company Number: US-PFIZER INC-2013081999

PATIENT
  Age: 57 Year
  Sex: Female
  Weight: 99.32 kg

DRUGS (2)
  1. ZOLOFT [Suspect]
     Dosage: 150 MG DAILY
  2. SIMVASTATIN [Concomitant]
     Indication: BLOOD CHOLESTEROL INCREASED
     Dosage: 40 MG DAILY

REACTIONS (3)
  - Fall [Unknown]
  - Lower limb fracture [Unknown]
  - Bedridden [Unknown]
